FAERS Safety Report 6915242-0 (Version None)
Quarter: 2010Q3

REPORT INFORMATION
  Report Type: 
  Country: None (occurrence: None)
  Receive Date: 20100806
  Receipt Date: 20100806
  Transmission Date: 20110219
  Serious: Yes (Other)
  Sender: FDA-Public Use
  Company Number: None

PATIENT
  Sex: Male
  Weight: 55.7924 kg

DRUGS (1)
  1. PREVIDENT 5000 PLUS 1.1% SODIUM FLOURIDE COLGATE [Suspect]
     Indication: DENTAL DISORDER PROPHYLAXIS
     Dosage: ONCE DAILY ONCE AT BEDTIME DENTAL
     Route: 004
     Dates: start: 20100714, end: 20100804

REACTIONS (3)
  - ORAL DISCOMFORT [None]
  - OROPHARYNGEAL BLISTERING [None]
  - THROAT IRRITATION [None]
